FAERS Safety Report 4533863-X (Version None)
Quarter: 2004Q4

REPORT INFORMATION
  Report Type: 
  Country: None (occurrence: None)
  Receive Date: 20041221
  Receipt Date: 20041217
  Transmission Date: 20050328
  Serious: Yes (Other)
  Sender: FDA-Public Use
  Company Number: US-MERCK-0412USA02184

PATIENT
  Sex: Male

DRUGS (9)
  1. COREG [Suspect]
     Indication: VENTRICULAR DYSFUNCTION
     Route: 048
     Dates: start: 20030626
  2. COREG [Suspect]
     Route: 048
     Dates: end: 20041202
  3. COREG [Suspect]
     Route: 048
     Dates: start: 20041203
  4. MEVACOR [Suspect]
     Route: 048
     Dates: end: 20040301
  5. CRESTOR [Suspect]
     Route: 065
     Dates: start: 20040701, end: 20041101
  6. ASPIRIN [Concomitant]
     Route: 065
  7. LASIX [Concomitant]
     Route: 065
  8. POTASSIUM CHLORIDE [Concomitant]
     Route: 065
  9. ALTACE [Concomitant]
     Route: 065

REACTIONS (12)
  - AGITATION [None]
  - AMNESIA [None]
  - CARDIAC ANEURYSM [None]
  - CORONARY ARTERY DISEASE [None]
  - DISTURBANCE IN ATTENTION [None]
  - DIZZINESS [None]
  - HYPERCHOLESTEROLAEMIA [None]
  - INSOMNIA [None]
  - MYALGIA [None]
  - MYOCARDIAL INFARCTION [None]
  - PALPITATIONS [None]
  - VENTRICULAR DYSFUNCTION [None]
